FAERS Safety Report 18992196 (Version 1)
Quarter: 2021Q1

REPORT INFORMATION
  Report Type: Spontaneous
  Country: US (occurrence: US)
  Receive Date: 20210310
  Receipt Date: 20210310
  Transmission Date: 20210420
  Serious: Yes (Hospitalization)
  Sender: FDA-Public Use
  Company Number: None

PATIENT
  Age: 58 Year
  Sex: Female

DRUGS (20)
  1. ASPIRIN. [Concomitant]
     Active Substance: ASPIRIN
  2. SEROQUEL [Concomitant]
     Active Substance: QUETIAPINE FUMARATE
  3. HYDROCHLOROTHIAZIDE. [Concomitant]
     Active Substance: HYDROCHLOROTHIAZIDE
  4. NIACIN. [Concomitant]
     Active Substance: NIACIN
  5. QUETIAPINE. [Concomitant]
     Active Substance: QUETIAPINE
  6. REYVOW [Concomitant]
     Active Substance: LASMIDITAN
  7. PREGABALIN. [Concomitant]
     Active Substance: PREGABALIN
  8. BACLOFEN. [Concomitant]
     Active Substance: BACLOFEN
  9. TOPIRAMATE. [Concomitant]
     Active Substance: TOPIRAMATE
  10. TRICOR [Concomitant]
     Active Substance: FENOFIBRATE
  11. NORCO [Concomitant]
     Active Substance: ACETAMINOPHEN\HYDROCODONE BITARTRATE
  12. DIMETHYL FUMARATE [Suspect]
     Active Substance: DIMETHYL FUMARATE
     Indication: MULTIPLE SCLEROSIS
     Route: 048
     Dates: start: 20201124
  13. SERTRALINE [Concomitant]
     Active Substance: SERTRALINE HYDROCHLORIDE
  14. LYRICA [Concomitant]
     Active Substance: PREGABALIN
  15. CLONAZEPAM. [Concomitant]
     Active Substance: CLONAZEPAM
  16. ESTRACE [Concomitant]
     Active Substance: ESTRADIOL
  17. DIOVAN [Concomitant]
     Active Substance: VALSARTAN
  18. CARVEDILOL. [Concomitant]
     Active Substance: CARVEDILOL
  19. SAVELLA [Concomitant]
     Active Substance: MILNACIPRAN HYDROCHLORIDE
  20. ESTRADIOL. [Concomitant]
     Active Substance: ESTRADIOL

REACTIONS (1)
  - Neck surgery [None]
